FAERS Safety Report 23310963 (Version 1)
Quarter: 2023Q4

REPORT INFORMATION
  Report Type: Spontaneous
  Country: GB (occurrence: GB)
  Receive Date: 20231218
  Receipt Date: 20231218
  Transmission Date: 20240110
  Serious: No
  Sender: FDA-Public Use
  Company Number: None

PATIENT
  Age: 72 Year
  Sex: Female

DRUGS (3)
  1. MYCOPHENOLATE MOFETIL [Suspect]
     Active Substance: MYCOPHENOLATE MOFETIL
     Indication: Product used for unknown indication
     Dosage: UNK
     Route: 065
  2. OFEV [Suspect]
     Active Substance: NINTEDANIB
     Indication: Product used for unknown indication
     Dosage: 150 MILLIGRAM, BID (PER 12 HOUR)
     Route: 048
  3. OFEV [Suspect]
     Active Substance: NINTEDANIB
     Dosage: 100 MILLIGRAM, BID (PER 12 HOUR)
     Route: 048

REACTIONS (2)
  - Diarrhoea [Unknown]
  - Nausea [Unknown]
